FAERS Safety Report 8470237-3 (Version None)
Quarter: 2012Q2

REPORT INFORMATION
  Report Type: 
  Country: None (occurrence: None)
  Receive Date: 20120621
  Receipt Date: 20120621
  Transmission Date: 20120825
  Serious: Yes (Other)
  Sender: FDA-Public Use
  Company Number: None

PATIENT
  Age: 62 Year
  Sex: Female

DRUGS (2)
  1. MIRTAZAPINE [Suspect]
     Indication: DEPRESSION
     Dosage: 15MG ONCE NIGHTLY PO
     Route: 048
     Dates: start: 20120612, end: 20120620
  2. MIRTAZAPINE [Suspect]
     Indication: ANXIETY
     Dosage: 15MG ONCE NIGHTLY PO
     Route: 048
     Dates: start: 20120612, end: 20120620

REACTIONS (6)
  - SLEEP TERROR [None]
  - INSOMNIA [None]
  - AGITATION [None]
  - DEPRESSION [None]
  - RESTLESSNESS [None]
  - ANXIETY [None]
